FAERS Safety Report 10061535 (Version 1)
Quarter: 2014Q2

REPORT INFORMATION
  Report Type: Spontaneous
  Country: US (occurrence: None)
  Receive Date: 20140404
  Receipt Date: 20140404
  Transmission Date: 20141212
  Serious: No
  Sender: FDA-Public Use
  Company Number: None

PATIENT
  Age: 85 Year
  Sex: Male
  Weight: 60.78 kg

DRUGS (3)
  1. ALEVE [Suspect]
     Indication: ARTHRITIS
  2. ALEVE [Suspect]
     Indication: CARDIAC DISORDER
  3. ASPIRIN [Suspect]
     Indication: CARDIAC DISORDER
     Dosage: FOR YEARS TOGETHER WITH ALEVE.

REACTIONS (2)
  - Nervous system disorder [None]
  - Renal disorder [None]
